FAERS Safety Report 13697647 (Version 2)
Quarter: 2017Q2

REPORT INFORMATION
  Report Type: Report from Study
  Country: None (occurrence: US)
  Receive Date: 20170628
  Receipt Date: 20170630
  Transmission Date: 20170830
  Serious: Yes (Other)
  Sender: FDA-Public Use
  Company Number: US-ARALEZ PHARMACEUTICALS RD INC.-ARA-TP-US-2017-693

PATIENT
  Sex: Female

DRUGS (18)
  1. METOPROLOL SUCCINATE. [Suspect]
     Active Substance: METOPROLOL SUCCINATE
     Indication: PRODUCT USED FOR UNKNOWN INDICATION
     Route: 065
  2. IRESSA [Suspect]
     Active Substance: GEFITINIB
     Route: 048
     Dates: start: 20160608
  3. DULCOLAX NOS [Concomitant]
     Active Substance: BISACODYL OR DOCUSATE SODIUM
     Indication: PRODUCT USED FOR UNKNOWN INDICATION
  4. IRESSA [Suspect]
     Active Substance: GEFITINIB
     Indication: NEOPLASM MALIGNANT
     Route: 048
     Dates: start: 20160608
  5. LISINOPRIL. [Suspect]
     Active Substance: LISINOPRIL
     Indication: PRODUCT USED FOR UNKNOWN INDICATION
     Route: 065
  6. LORAZEPAM. [Concomitant]
     Active Substance: LORAZEPAM
     Indication: PRODUCT USED FOR UNKNOWN INDICATION
  7. HYDROCODONE BITARTRATE AND ACETAMINOPHEN [Concomitant]
     Active Substance: ACETAMINOPHEN\HYDROCODONE BITARTRATE
     Indication: PRODUCT USED FOR UNKNOWN INDICATION
  8. IRESSA [Suspect]
     Active Substance: GEFITINIB
     Route: 048
     Dates: start: 20160608
  9. CRESTOR [Suspect]
     Active Substance: ROSUVASTATIN CALCIUM
     Indication: PRODUCT USED FOR UNKNOWN INDICATION
     Route: 065
  10. IRESSA [Suspect]
     Active Substance: GEFITINIB
     Indication: LUNG NEOPLASM MALIGNANT
     Route: 048
     Dates: start: 20160608
  11. IRESSA [Suspect]
     Active Substance: GEFITINIB
     Route: 048
     Dates: start: 20160801
  12. IRESSA [Suspect]
     Active Substance: GEFITINIB
     Route: 048
     Dates: start: 20160901
  13. CYMBALTA [Suspect]
     Active Substance: DULOXETINE HYDROCHLORIDE
     Indication: PRODUCT USED FOR UNKNOWN INDICATION
     Route: 065
  14. IRESSA [Suspect]
     Active Substance: GEFITINIB
     Route: 048
     Dates: start: 20160801
  15. STOOL SOFTENER (DOCUSATE) [Concomitant]
     Active Substance: DOCUSATE
     Indication: PRODUCT USED FOR UNKNOWN INDICATION
  16. VITAMIN D [Concomitant]
     Active Substance: CHOLECALCIFEROL
     Indication: PRODUCT USED FOR UNKNOWN INDICATION
  17. METOPROLOL SUCCINATE. [Suspect]
     Active Substance: METOPROLOL SUCCINATE
     Indication: PRODUCT USED FOR UNKNOWN INDICATION
     Route: 065
  18. IRESSA [Suspect]
     Active Substance: GEFITINIB
     Route: 048
     Dates: start: 20170113

REACTIONS (17)
  - Hair texture abnormal [Unknown]
  - Abdominal pain upper [Unknown]
  - Hair growth abnormal [Unknown]
  - Fall [Unknown]
  - Rash vesicular [Unknown]
  - Pain of skin [Unknown]
  - Anxiety [Unknown]
  - Skin discolouration [Unknown]
  - Fatigue [Unknown]
  - Weight increased [Unknown]
  - Malaise [Unknown]
  - Rash [Unknown]
  - Acne [Unknown]
  - Asthenia [Unknown]
  - Feeling abnormal [Unknown]
  - Ear disorder [Unknown]
  - Pain in extremity [Unknown]
